FAERS Safety Report 6869929-9 (Version None)
Quarter: 2010Q3

REPORT INFORMATION
  Report Type: 
  Country: None (occurrence: None)
  Receive Date: 20100722
  Receipt Date: 20080907
  Transmission Date: 20110219
  Serious: No
  Sender: FDA-Public Use
  Company Number: US-PFIZER INC-2008075758

PATIENT
  Sex: Female
  Weight: 58.97 kg

DRUGS (4)
  1. CHANTIX [Suspect]
     Indication: NICOTINE DEPENDENCE
     Dates: start: 20080829
  2. POTASSIUM [Concomitant]
  3. DRUG, UNSPECIFIED [Concomitant]
  4. FOSAMAX [Concomitant]

REACTIONS (5)
  - HEADACHE [None]
  - INFLUENZA [None]
  - NAUSEA [None]
  - PAIN [None]
  - VOMITING [None]
